FAERS Safety Report 12327961 (Version 3)
Quarter: 2016Q2

REPORT INFORMATION
  Report Type: Report from Study
  Country: NL (occurrence: NL)
  Receive Date: 20160503
  Receipt Date: 20160615
  Transmission Date: 20160815
  Serious: Yes (Death, Other)
  Sender: FDA-Public Use
  Company Number: NL-AMGEN-NLDSL2016054337

PATIENT
  Age: 73 Year
  Sex: Female

DRUGS (1)
  1. XGEVA [Suspect]
     Active Substance: DENOSUMAB
     Indication: PROPHYLAXIS
     Dosage: 120 MG, (1.7 ML) Q4WK
     Route: 058

REACTIONS (2)
  - Death [Fatal]
  - Radiotherapy [Unknown]

NARRATIVE: CASE EVENT DATE: 201604
